FAERS Safety Report 12631718 (Version 3)
Quarter: 2017Q1

REPORT INFORMATION
  Report Type: Spontaneous
  Country: US (occurrence: US)
  Receive Date: 20160808
  Receipt Date: 20170309
  Transmission Date: 20170428
  Serious: No
  Sender: FDA-Public Use
  Company Number: US-BEH-2016060788

PATIENT
  Sex: Female
  Weight: 61.22 kg

DRUGS (28)
  1. GABAPENTIN. [Concomitant]
     Active Substance: GABAPENTIN
  2. LEXAPRO [Concomitant]
     Active Substance: ESCITALOPRAM OXALATE
  3. DICLOFENAC [Concomitant]
     Active Substance: DICLOFENAC
  4. GLUCOSAMINE-CHONDR-MSM [Concomitant]
  5. HIZENTRA [Suspect]
     Active Substance: HUMAN IMMUNOGLOBULIN G
     Indication: SELECTIVE IGG SUBCLASS DEFICIENCY
     Dosage: 8 UNK, UNK
     Route: 058
     Dates: start: 20111011
  6. FAMOTIDINE. [Concomitant]
     Active Substance: FAMOTIDINE
  7. HYDROCODONE-ACETAMINOPHEN [Concomitant]
     Active Substance: ACETAMINOPHEN\HYDROCODONE
  8. ACETAMINOPHEN. [Concomitant]
     Active Substance: ACETAMINOPHEN
  9. HIZENTRA [Suspect]
     Active Substance: HUMAN IMMUNOGLOBULIN G
     Dosage: UNK
     Route: 058
  10. CLONAZEPAM. [Concomitant]
     Active Substance: CLONAZEPAM
  11. CALCIUM+VITAMIN D [Concomitant]
     Active Substance: CALCIUM\VITAMIN D
  12. AMBIEN [Concomitant]
     Active Substance: ZOLPIDEM TARTRATE
  13. HIZENTRA [Suspect]
     Active Substance: HUMAN IMMUNOGLOBULIN G
     Indication: IMMUNODEFICIENCY COMMON VARIABLE
     Dosage: UNK
     Route: 058
  14. EPIPEN [Concomitant]
     Active Substance: EPINEPHRINE
  15. VITAMIN C50+COMPLETE [Concomitant]
  16. IPRAT-ALBUT [Concomitant]
  17. DIPHENHYDRAMINE. [Concomitant]
     Active Substance: DIPHENHYDRAMINE
  18. ZOLPIDEM [Concomitant]
     Active Substance: ZOLPIDEM\ZOLPIDEM TARTRATE
  19. METHADONE [Concomitant]
     Active Substance: METHADONE HYDROCHLORIDE
  20. ZINC. [Concomitant]
     Active Substance: ZINC
  21. BAYER ASPIRIN [Concomitant]
     Active Substance: ASPIRIN
  22. ZINC+ECHINACEA [Concomitant]
  23. PERMETHRIN. [Concomitant]
     Active Substance: PERMETHRIN
     Route: 065
  24. SAVELLA [Concomitant]
     Active Substance: MILNACIPRAN HYDROCHLORIDE
  25. BACTRIM [Concomitant]
     Active Substance: SULFAMETHOXAZOLE\TRIMETHOPRIM
  26. ECHINACEA [Concomitant]
     Active Substance: ECHINACEA, UNSPECIFIED
  27. COMPLETE MULTIVITAMIN [Concomitant]
     Active Substance: VITAMINS
  28. TIZANIDINE. [Concomitant]
     Active Substance: TIZANIDINE

REACTIONS (5)
  - Pruritus [Unknown]
  - Alopecia [Unknown]
  - Fungal infection [Unknown]
  - Skin discolouration [Unknown]
  - Infusion site discolouration [Unknown]
